FAERS Safety Report 17179954 (Version 2)
Quarter: 2019Q4

REPORT INFORMATION
  Report Type: Spontaneous
  Country: FI (occurrence: FI)
  Receive Date: 20191219
  Receipt Date: 20191227
  Transmission Date: 20200122
  Serious: Yes (Other)
  Sender: FDA-Public Use
  Company Number: FI-PFIZER INC-2019541078

PATIENT
  Age: 85 Year
  Sex: Female

DRUGS (1)
  1. XELJANZ [Suspect]
     Active Substance: TOFACITINIB CITRATE
     Indication: COLITIS ULCERATIVE
     Dosage: 10 MG, 2X/DAY
     Dates: start: 20191016, end: 20191127

REACTIONS (4)
  - Cytomegalovirus viraemia [Not Recovered/Not Resolved]
  - Drug ineffective [Unknown]
  - Gastroenteritis clostridial [Not Recovered/Not Resolved]
  - Herpes ophthalmic [Not Recovered/Not Resolved]
